FAERS Safety Report 10029397 (Version 1)
Quarter: 2014Q1

REPORT INFORMATION
  Report Type: Report from Study
  Country: BR (occurrence: BR)
  Receive Date: 20140322
  Receipt Date: 20140322
  Transmission Date: 20141002
  Serious: Yes (Other)
  Sender: FDA-Public Use
  Company Number: PHHY2014BR033327

PATIENT
  Sex: Female
  Weight: 78 kg

DRUGS (6)
  1. DIOVAN [Suspect]
     Indication: CARDIAC DISORDER
     Dosage: 1 DF(320MG), DAILY
     Route: 048
  2. DIOVAN [Suspect]
     Indication: OFF LABEL USE
  3. ATENOLOL [Concomitant]
     Indication: HEART RATE ABNORMAL
     Dosage: 50 MG, UNK
  4. SIMVASTATIN SANDOZ [Concomitant]
     Indication: CARDIAC DISORDER
     Dosage: 20 MG, UNK
  5. MYCOPHENOLATE MOFETIL ACCORD [Concomitant]
     Indication: TRANSPLANT
     Dosage: 500 MG, UNK
  6. OMEPRAZOLE [Concomitant]
     Indication: GASTRIC DISORDER
     Dosage: 10 MG, UNK

REACTIONS (5)
  - Diabetes mellitus [Recovered/Resolved]
  - Angina pectoris [Recovered/Resolved]
  - Thyroid disorder [Recovered/Resolved]
  - Malaise [Recovered/Resolved]
  - Abdominal pain upper [Recovered/Resolved]
